FAERS Safety Report 10126303 (Version 3)
Quarter: 2014Q2

REPORT INFORMATION
  Report Type: Spontaneous
  Country: JP (occurrence: JP)
  Receive Date: 20140427
  Receipt Date: 20140527
  Transmission Date: 20141212
  Serious: Yes (Hospitalization)
  Sender: FDA-Public Use
  Company Number: JP-BRISTOL-MYERS SQUIBB COMPANY-20662987

PATIENT
  Age: 72 Year
  Sex: Female
  Weight: 73.5 kg

DRUGS (2)
  1. ELIQUIS [Suspect]
     Dosage: 19MAR14- 2.5 MG/DAY
     Route: 048
     Dates: start: 20140219, end: 20140318
  2. ACTOS [Suspect]

REACTIONS (1)
  - Cardiac failure congestive [Recovered/Resolved]
